FAERS Safety Report 7438596-8 (Version None)
Quarter: 2011Q2

REPORT INFORMATION
  Report Type: 
  Country: None (occurrence: None)
  Receive Date: 20110426
  Receipt Date: 20110420
  Transmission Date: 20111010
  Serious: Yes (Other)
  Sender: FDA-Public Use
  Company Number: AT-PFIZER INC-2008011734

PATIENT
  Age: 24 Year
  Sex: Female

DRUGS (7)
  1. LEPONEX [Interacting]
     Dosage: 475MG DAILY
     Route: 048
     Dates: end: 20071026
  2. AKINETON [Concomitant]
     Indication: SCHIZOPHRENIA
     Dosage: 2MG DAILY
     Route: 048
     Dates: start: 20070930
  3. TRESLEEN [Suspect]
     Indication: SCHIZOPHRENIA
     Dosage: 50 MG, 2X/DAY
     Route: 048
     Dates: start: 20071025
  4. OXAZEPAM [Concomitant]
     Indication: SCHIZOPHRENIA
     Dosage: 60MG DAILY
     Route: 048
     Dates: start: 20070719
  5. SAROTEN [Concomitant]
     Indication: SCHIZOPHRENIA
     Dosage: 25MG DAILY
     Route: 048
     Dates: start: 20071010
  6. LEPONEX [Interacting]
     Indication: SCHIZOPHRENIA
     Dosage: 25MG DAILY
     Route: 048
     Dates: start: 20070808
  7. LEPONEX [Interacting]
     Dosage: 425MG DAILY
     Route: 048
     Dates: start: 20071027

REACTIONS (4)
  - VISUAL IMPAIRMENT [None]
  - DRUG INTERACTION [None]
  - TREMOR [None]
  - AKATHISIA [None]
